FAERS Safety Report 8124311-1 (Version None)
Quarter: 2012Q1

REPORT INFORMATION
  Report Type: 
  Country: None (occurrence: None)
  Receive Date: 20120209
  Receipt Date: 20120201
  Transmission Date: 20120608
  Serious: Yes (Other)
  Sender: FDA-Public Use
  Company Number: US-US-EMD SERONO, INC.-7019055

PATIENT
  Sex: Female

DRUGS (4)
  1. REBIF [Suspect]
     Indication: MULTIPLE SCLEROSIS
     Route: 058
     Dates: start: 20070924
  2. PAIN MEDICATION [Concomitant]
     Indication: BACK DISORDER
  3. UNSPECIFIED MEDICATION [Concomitant]
     Indication: BLOOD PRESSURE
  4. PAIN MEDICATION [Concomitant]
     Indication: BACK PAIN

REACTIONS (14)
  - PAIN IN EXTREMITY [None]
  - INJECTION SITE HAEMATOMA [None]
  - MEMORY IMPAIRMENT [None]
  - PERIPHERAL COLDNESS [None]
  - HYPOAESTHESIA [None]
  - HYPOACUSIS [None]
  - BALANCE DISORDER [None]
  - BLOOD PRESSURE INCREASED [None]
  - MUSCULAR WEAKNESS [None]
  - INJECTION SITE ERYTHEMA [None]
  - OEDEMA PERIPHERAL [None]
  - INTERVERTEBRAL DISC DISORDER [None]
  - ROAD TRAFFIC ACCIDENT [None]
  - SPEECH DISORDER [None]
